FAERS Safety Report 5837212-6 (Version None)
Quarter: 2008Q3

REPORT INFORMATION
  Report Type: 
  Country: None (occurrence: None)
  Receive Date: 20080807
  Receipt Date: 20080729
  Transmission Date: 20090109
  Serious: Yes (Disabling)
  Sender: FDA-Public Use
  Company Number: FR-JNJFOC-20080706732

PATIENT
  Age: 73 Year
  Sex: Male

DRUGS (8)
  1. OFLOCET [Suspect]
     Indication: SEPSIS
     Route: 048
  2. OFLOCET [Suspect]
     Indication: URINARY TRACT INFECTION
     Route: 048
  3. OROKEN [Suspect]
     Indication: SEPSIS
     Route: 048
  4. OROKEN [Suspect]
     Indication: URINARY TRACT INFECTION
     Route: 048
  5. DOLIPRANE [Concomitant]
     Route: 048
  6. FLUDEX [Concomitant]
     Route: 048
  7. POTASSIUM CHLORIDE [Concomitant]
     Route: 065
  8. ROSUVASTATIN CALCIUM [Concomitant]
     Route: 048

REACTIONS (2)
  - ARTHRALGIA [None]
  - INSOMNIA [None]
